FAERS Safety Report 7558921-7 (Version None)
Quarter: 2011Q2

REPORT INFORMATION
  Report Type: 
  Country: None (occurrence: None)
  Receive Date: 20110621
  Receipt Date: 20110613
  Transmission Date: 20111010
  Serious: Yes (Hospitalization)
  Sender: FDA-Public Use
  Company Number: JP-AMGEN-JPNSP2011025652

PATIENT
  Age: 69 Year
  Sex: Female
  Weight: 58.3 kg

DRUGS (13)
  1. CELECOXIB [Concomitant]
     Indication: RHEUMATOID ARTHRITIS
     Dosage: 200 MG, AS NEEDED
     Route: 048
     Dates: start: 20110323
  2. METHOTREXATE [Suspect]
     Dosage: 6 MG, WEEKLY
     Route: 048
  3. PREDNISOLONE [Concomitant]
     Indication: RHEUMATOID ARTHRITIS
     Dosage: 3 MG, 1X/DAY
     Route: 048
     Dates: start: 20110323
  4. HYDRA                              /00030201/ [Concomitant]
     Dosage: 50 MG, UNK
  5. REMICADE [Concomitant]
     Dosage: UNK
     Dates: end: 20110201
  6. AZULFIDINE [Concomitant]
     Indication: RHEUMATOID ARTHRITIS
     Dosage: 500 MG, 1X/DAY
     Route: 048
     Dates: start: 20110323
  7. SALIGREN [Concomitant]
     Indication: SJOGREN'S SYNDROME
     Dosage: 30 MG, 1X/DAY
     Route: 048
     Dates: start: 20110330
  8. ALFAROL [Concomitant]
     Indication: OSTEOPOROSIS
     Dosage: 0.25 UG, 1X/DAY
     Route: 048
     Dates: start: 20110323
  9. ENBREL [Suspect]
     Indication: RHEUMATOID ARTHRITIS
     Dosage: 25 MG, 2X/WEEK
     Route: 058
     Dates: start: 20110323, end: 20110413
  10. RABEPRAZOLE SODIUM [Concomitant]
     Indication: GASTRIC ULCER
     Dosage: 10 MG, 1X/DAY
     Route: 048
     Dates: start: 20110323
  11. INFREE S [Concomitant]
     Dosage: 200 MG, UNK
  12. FOSAMAC [Concomitant]
     Indication: OSTEOPOROSIS
     Dosage: 35 MG, 1X/DAY
     Route: 048
     Dates: start: 20110323
  13. CYTOTEC [Concomitant]
     Indication: RHEUMATOID ARTHRITIS
     Dosage: 100 MG, AS NEEDED
     Route: 048
     Dates: start: 20110323

REACTIONS (2)
  - CEREBELLAR INFARCTION [None]
  - WHITE BLOOD CELL COUNT DECREASED [None]
